FAERS Safety Report 24268140 (Version 2)
Quarter: 2025Q4

REPORT INFORMATION
  Report Type: Spontaneous
  Country: US (occurrence: US)
  Receive Date: 20240830
  Receipt Date: 20251201
  Transmission Date: 20260118
  Serious: No
  Sender: MERCK SHARP & DOHME LLC
  Company Number: None

PATIENT
  Sex: Female
  Weight: 59 kg

DRUGS (23)
  1. WINREVAIR [Suspect]
     Active Substance: SOTATERCEPT-CSRK
     Indication: Product used for unknown indication
     Dosage: UNK
  2. WINREVAIR [Suspect]
     Active Substance: SOTATERCEPT-CSRK
  3. WINREVAIR [Suspect]
     Active Substance: SOTATERCEPT-CSRK
  4. WINREVAIR [Suspect]
     Active Substance: SOTATERCEPT-CSRK
  5. TYLENOL [Concomitant]
     Active Substance: ACETAMINOPHEN
  6. BUMETANIDE [Concomitant]
     Active Substance: BUMETANIDE
  7. SODIUM CHLORIDE [Concomitant]
     Active Substance: SODIUM CHLORIDE
  8. PANTOPRAZOLE SODIUM [Concomitant]
     Active Substance: PANTOPRAZOLE SODIUM
  9. KETAMINE HYDROCHLORIDE [Concomitant]
     Active Substance: KETAMINE HYDROCHLORIDE
  10. LECITHIN [Concomitant]
     Active Substance: LECITHIN
  11. SILDENAFIL CITRATE [Concomitant]
     Active Substance: SILDENAFIL CITRATE
  12. VITAMINS [Concomitant]
     Active Substance: VITAMINS
  13. OPSUMIT [Concomitant]
     Active Substance: MACITENTAN
  14. CLONIDINE [Concomitant]
     Active Substance: CLONIDINE
  15. KETOPROFEN [Concomitant]
     Active Substance: KETOPROFEN
  16. OXYGEN [Concomitant]
     Active Substance: OXYGEN
  17. LIDOCAINE HYDROCHLORIDE [Concomitant]
     Active Substance: LIDOCAINE HYDROCHLORIDE
  18. GABAPENTIN [Concomitant]
     Active Substance: GABAPENTIN
  19. AMITRIPTYLINE [Concomitant]
     Active Substance: AMITRIPTYLINE
  20. POLOXAMER [Concomitant]
     Active Substance: POLOXAMER
  21. REMODULIN [Suspect]
     Active Substance: TREPROSTINIL
     Indication: Pulmonary arterial hypertension
     Dosage: 44 NG/KG/MIN, CONTINUING, SUBCUTANEOUS USE, PUMP RATE: 18 MCL PER HOUR, (PHARMACY-FILLED WITH 2ML...
     Route: 058
     Dates: start: 20240206
  22. REMODULIN [Suspect]
     Active Substance: TREPROSTINIL
     Indication: Pulmonary arterial hypertension
     Dosage: 0.048  G/KG (PHARMACY FILLED, 3 ML PER CASSETTE, RATE 39 MCL/HR), CONTINUOUS VIA?SUBCUTANEOUS (SQ...
     Route: 058
  23. ADVIL [Concomitant]
     Active Substance: IBUPROFEN

REACTIONS (2)
  - Adverse drug reaction [Unknown]
  - Haemoglobin increased [Unknown]
